FAERS Safety Report 18337647 (Version 3)
Quarter: 2020Q4

REPORT INFORMATION
  Report Type: Spontaneous
  Country: RU (occurrence: RU)
  Receive Date: 20201002
  Receipt Date: 20201027
  Transmission Date: 20210113
  Serious: Yes (Death, Other)
  Sender: FDA-Public Use
  Company Number: RU-ROCHE-2688110

PATIENT
  Sex: Female

DRUGS (4)
  1. RITUXIMAB. [Suspect]
     Active Substance: RITUXIMAB
     Indication: MARGINAL ZONE LYMPHOMA RECURRENT
     Dosage: 4 CYCLES
     Route: 065
     Dates: start: 2008
  2. OBINUTUZUMAB. [Suspect]
     Active Substance: OBINUTUZUMAB
     Indication: MARGINAL ZONE LYMPHOMA RECURRENT
     Dosage: GB REGIMEN
     Route: 065
     Dates: start: 2018, end: 2019
  3. BENDAMUSTINE [Suspect]
     Active Substance: BENDAMUSTINE
     Indication: MARGINAL ZONE LYMPHOMA RECURRENT
     Dosage: GB REGIMEN
     Route: 065
     Dates: start: 2018, end: 2019
  4. RITUXIMAB. [Suspect]
     Active Substance: RITUXIMAB
     Dosage: 8RCVP+R REGIMEN
     Route: 065
     Dates: start: 2013, end: 2016

REACTIONS (2)
  - Pneumonia [Fatal]
  - Marginal zone lymphoma recurrent [Unknown]
